FAERS Safety Report 9622458 (Version 1)
Quarter: 2013Q4

REPORT INFORMATION
  Report Type: Spontaneous
  Country: US (occurrence: US)
  Receive Date: 20131015
  Receipt Date: 20131015
  Transmission Date: 20140711
  Serious: No
  Sender: FDA-Public Use
  Company Number: US-PURDUE-USA-2012-0085901

PATIENT
  Sex: Female

DRUGS (1)
  1. BUTRANS [Suspect]
     Indication: PRODUCT USED FOR UNKNOWN INDICATION
     Dosage: 10 MCG/HR, UNK
     Route: 062
     Dates: start: 20120120

REACTIONS (7)
  - Dyspnoea [Unknown]
  - Sneezing [Unknown]
  - Dizziness [Unknown]
  - Confusional state [Unknown]
  - Headache [Unknown]
  - Drug hypersensitivity [Unknown]
  - Chest discomfort [Unknown]
